FAERS Safety Report 5826406-1 (Version None)
Quarter: 2008Q3

REPORT INFORMATION
  Report Type: 
  Country: None (occurrence: None)
  Receive Date: 20080729
  Receipt Date: 20080723
  Transmission Date: 20090109
  Serious: Yes (Hospitalization)
  Sender: FDA-Public Use
  Company Number: AU-BOEHRINGER INGELHEIM GMBH, GERMANY-2008-BP-11013AU

PATIENT
  Sex: Male
  Weight: 130 kg

DRUGS (7)
  1. MOBIC [Suspect]
     Route: 048
  2. ASPIRIN [Suspect]
     Indication: ADVERSE EVENT
     Route: 048
  3. WARFARIN SODIUM [Concomitant]
  4. ZYLOPRIM [Concomitant]
     Indication: GOUT
     Route: 048
  5. MODURETIC 5-50 [Concomitant]
     Indication: HYPERTENSION
     Route: 048
  6. DITROPAN [Concomitant]
     Indication: URINARY RETENTION
     Route: 048
  7. SIMVAHEXAL [Concomitant]
     Indication: HYPERCHOLESTEROLAEMIA
     Route: 048

REACTIONS (1)
  - DUODENAL ULCER PERFORATION [None]
